FAERS Safety Report 23740454 (Version 1)
Quarter: 2024Q2

REPORT INFORMATION
  Report Type: Spontaneous
  Country: US (occurrence: US)
  Receive Date: 20240415
  Receipt Date: 20240415
  Transmission Date: 20240715
  Serious: Yes (Death, Hospitalization, Other)
  Sender: FDA-Public Use
  Company Number: US-GLENMARK PHARMACEUTICALS-2024GMK090009

PATIENT

DRUGS (2)
  1. CARVEDILOL [Suspect]
     Active Substance: CARVEDILOL
     Indication: Product used for unknown indication
     Dosage: UNK
     Route: 065
  2. COLCHICINE [Suspect]
     Active Substance: COLCHICINE
     Indication: Product used for unknown indication
     Dosage: UNK
     Route: 065

REACTIONS (11)
  - Intentional overdose [Fatal]
  - Hepatic failure [Unknown]
  - Respiratory acidosis [Unknown]
  - Acute respiratory distress syndrome [Unknown]
  - Metabolic acidosis [Unknown]
  - Right ventricular failure [Unknown]
  - Renal failure [Unknown]
  - Distributive shock [Unknown]
  - Cardiac failure congestive [Unknown]
  - Respiratory failure [Unknown]
  - Cardiogenic shock [Unknown]
